FAERS Safety Report 12704098 (Version 1)
Quarter: 2016Q3

REPORT INFORMATION
  Report Type: Report from Study
  Country: BR (occurrence: BR)
  Receive Date: 20160831
  Receipt Date: 20160831
  Transmission Date: 20161109
  Serious: Yes (Death)
  Sender: FDA-Public Use
  Company Number: PHHY2016BR118973

PATIENT
  Age: 9 Year
  Sex: Male
  Weight: 32 kg

DRUGS (4)
  1. TRILEPTAL [Suspect]
     Active Substance: OXCARBAZEPINE
     Indication: SEIZURE
     Dosage: UNK, QD
     Route: 065
  2. DEPAKINE [Suspect]
     Active Substance: VALPROATE SODIUM
     Indication: SEIZURE
     Dosage: QD
     Route: 048
  3. FRISIUM [Concomitant]
     Active Substance: CLOBAZAM
     Indication: SEIZURE
     Dosage: UNK UNK, QD
     Route: 048
  4. DEPAKINE [Suspect]
     Active Substance: VALPROATE SODIUM
     Indication: SEIZURE
     Dosage: QD
     Route: 048

REACTIONS (4)
  - Pleural effusion [Fatal]
  - Wrong technique in product usage process [Unknown]
  - Adverse drug reaction [Unknown]
  - Drug intolerance [Unknown]
